FAERS Safety Report 18899849 (Version 9)
Quarter: 2021Q2

REPORT INFORMATION
  Report Type: Report from Study
  Country: CZ (occurrence: CZ)
  Receive Date: 20210216
  Receipt Date: 20210621
  Transmission Date: 20210717
  Serious: Yes (Death, Hospitalization, Other)
  Sender: FDA-Public Use
  Company Number: NVSC2021CZ031196

PATIENT
  Age: 63 Year
  Sex: Female
  Weight: 76 kg

DRUGS (14)
  1. SALBUTAMOLUM [Concomitant]
     Active Substance: ALBUTEROL
     Indication: COUGH
     Dosage: UNK
     Route: 065
     Dates: start: 20200327
  2. VALGANCICLOVIRUM [Concomitant]
     Indication: CYTOMEGALOVIRUS INFECTION
     Dosage: UNK
     Route: 065
     Dates: start: 20210212, end: 20210312
  3. CEFOTAXIMUM [Concomitant]
     Indication: URINARY TRACT INFECTION
     Dosage: UNK
     Route: 065
     Dates: start: 20210206, end: 20210210
  4. MYCOPHENOLATE MOFETIL. [Suspect]
     Active Substance: MYCOPHENOLATE MOFETIL
     Indication: RENAL TRANSPLANT
     Dosage: 1 G, QD
     Route: 048
     Dates: start: 20190618, end: 20210202
  5. AMBROXOL [Concomitant]
     Active Substance: AMBROXOL
     Indication: COUGH
     Dosage: UNK
     Route: 065
     Dates: start: 20200421
  6. BUDESONIDUM [Concomitant]
     Active Substance: BUDESONIDE
     Indication: COUGH
     Dosage: UNK
     Route: 065
     Dates: start: 20200310
  7. ISCALIMAB [Suspect]
     Active Substance: ISCALIMAB
     Indication: RENAL TRANSPLANT
     Dosage: 13.2 ML, OTHER
     Route: 042
     Dates: start: 20190618, end: 20210126
  8. VALGANCICLOVIRUM [Concomitant]
     Indication: URINARY TRACT INFECTION
     Dosage: UNK
     Route: 065
     Dates: start: 20210126, end: 20210207
  9. SPIRONOLACTONUM [Concomitant]
     Indication: OEDEMA PERIPHERAL
     Dosage: UNK
     Route: 065
     Dates: start: 20200421
  10. CEFOTAXIMUM [Concomitant]
     Indication: CYTOMEGALOVIRUS INFECTION
     Dosage: UNK
     Route: 065
     Dates: start: 20210211, end: 20210211
  11. COLECALCIFEROL [Concomitant]
     Active Substance: CHOLECALCIFEROL
     Indication: HYPERPARATHYROIDISM
     Dosage: UNK
     Route: 065
     Dates: start: 20200908, end: 20210205
  12. CEFOTAXIMUM [Concomitant]
     Dosage: UNK
     Route: 065
     Dates: start: 20210212, end: 20210212
  13. PREDNISONE. [Concomitant]
     Active Substance: PREDNISONE
     Indication: PROPHYLAXIS
     Dosage: UNK
     Route: 065
     Dates: start: 20210203, end: 20210206
  14. EZETIMIBUM [Concomitant]
     Active Substance: EZETIMIBE
     Indication: DYSLIPIDAEMIA
     Dosage: UNK
     Route: 065
     Dates: start: 20191203, end: 20210205

REACTIONS (1)
  - Urinary tract infection [Recovered/Resolved with Sequelae]

NARRATIVE: CASE EVENT DATE: 20210204
